FAERS Safety Report 6016194-0 (Version None)
Quarter: 2008Q4

REPORT INFORMATION
  Report Type: 
  Country: None (occurrence: None)
  Receive Date: 20081218
  Receipt Date: 20081205
  Transmission Date: 20090506
  Serious: Yes (Hospitalization)
  Sender: FDA-Public Use
  Company Number: 232601K08USA

PATIENT
  Age: 59 Year
  Sex: Female

DRUGS (4)
  1. REBIF [Suspect]
     Indication: MULTIPLE SCLEROSIS
     Dosage: 44 MCG, 3 IN 1 WEEKS, SUBCUTANEOUS
     Route: 058
     Dates: start: 20070618, end: 20080901
  2. LIPITOR [Concomitant]
  3. UNSPECIFIED BLOOD PRESSURE MEDICATION (ANTIHYPERTENSIVES) [Concomitant]
  4. UNSPECIFIED DIABETES MEDICATION (DRUG USED IN DIABETES) [Concomitant]

REACTIONS (5)
  - ANKLE FRACTURE [None]
  - FALL [None]
  - LOWER LIMB FRACTURE [None]
  - NO THERAPEUTIC RESPONSE [None]
  - SURGICAL PROCEDURE REPEATED [None]
